FAERS Safety Report 5211295-9 (Version None)
Quarter: 2006Q4

REPORT INFORMATION
  Report Type: 
  Country: None (occurrence: None)
  Receive Date: 20061130
  Receipt Date: 20060511
  Transmission Date: 20070319
  Serious: Yes (Other)
  Sender: FDA-Public Use
  Company Number: WAES 0605USA02048

PATIENT
  Age: 56 Year
  Sex: Female

DRUGS (3)
  1. FOSAMAX [Suspect]
     Indication: OSTEOPOROSIS
     Dosage: 70 MG/WKY/PO
     Route: 048
     Dates: start: 20050701, end: 20060503
  2. CHLORHEXIDINE GLUCONATE [Concomitant]
  3. CLINDAMYCIN HCL [Concomitant]

REACTIONS (1)
  - OSTEONECROSIS [None]
